FAERS Safety Report 8453341 (Version 13)
Quarter: 2013Q4

REPORT INFORMATION
  Report Type: Report from Study
  Country: US (occurrence: US)
  Receive Date: 20120312
  Receipt Date: 20131009
  Transmission Date: 20140711
  Serious: Yes (Other)
  Sender: FDA-Public Use
  Company Number: PHEH2012US004287

PATIENT
  Sex: Female
  Weight: 55 kg

DRUGS (3)
  1. TASIGNA [Suspect]
     Indication: CHRONIC MYELOID LEUKAEMIA
     Dosage: 300 MG, BID
     Route: 048
     Dates: start: 20120215, end: 201202
  2. TASIGNA [Suspect]
     Dosage: 150 MG, BID
     Route: 048
  3. PREDISOLE [Concomitant]

REACTIONS (23)
  - Eye inflammation [Unknown]
  - Food allergy [Unknown]
  - Abdominal pain upper [Unknown]
  - Pneumonia [Unknown]
  - Epistaxis [Recovered/Resolved]
  - Liver injury [Unknown]
  - Cholelithiasis [Unknown]
  - Acute abdomen [Recovered/Resolved]
  - Dental caries [Unknown]
  - Toothache [Unknown]
  - Tooth discolouration [Unknown]
  - Liver function test abnormal [Unknown]
  - Nasopharyngitis [Unknown]
  - Chest pain [Unknown]
  - White blood cell count decreased [Unknown]
  - Platelet count decreased [Unknown]
  - Abdominal pain [Unknown]
  - Nausea [Recovered/Resolved]
  - Flatulence [Unknown]
  - Weight decreased [Unknown]
  - Fatigue [Unknown]
  - Uveitis [Unknown]
  - Drug ineffective [Unknown]
